FAERS Safety Report 5571331-7 (Version None)
Quarter: 2007Q4

REPORT INFORMATION
  Report Type: 
  Country: None (occurrence: None)
  Receive Date: 20071221
  Receipt Date: 20070719
  Transmission Date: 20080405
  Serious: No
  Sender: FDA-Public Use
  Company Number: A0665268A

PATIENT
  Age: 47 Year
  Sex: Female

DRUGS (2)
  1. FLONASE [Suspect]
     Dosage: 120MCG PER DAY
     Route: 045
  2. NO CONCURRENT MEDICATION [Concomitant]

REACTIONS (1)
  - THROAT IRRITATION [None]
